FAERS Safety Report 8235708-3 (Version None)
Quarter: 2012Q1

REPORT INFORMATION
  Report Type: 
  Country: None (occurrence: None)
  Receive Date: 20120326
  Receipt Date: 20120313
  Transmission Date: 20120608
  Serious: Yes (Other)
  Sender: FDA-Public Use
  Company Number: PHHY2012DE023062

PATIENT
  Sex: Female

DRUGS (1)
  1. VOLTAREN [Suspect]
     Indication: BACK DISORDER
     Dosage: UNK UKN, UNK
     Route: 030
     Dates: start: 19990101

REACTIONS (6)
  - TENDERNESS [None]
  - HYPERSENSITIVITY [None]
  - MUSCULOSKELETAL STIFFNESS [None]
  - ARACHNOID CYST [None]
  - MUSCULOSKELETAL DISCOMFORT [None]
  - MENINGEAL DISORDER [None]
